FAERS Safety Report 24766537 (Version 1)
Quarter: 2024Q4

REPORT INFORMATION
  Report Type: Spontaneous
  Country: US (occurrence: US)
  Receive Date: 20241223
  Receipt Date: 20241223
  Transmission Date: 20250115
  Serious: Yes (Hospitalization)
  Sender: Alora Pharma
  Company Number: US-SUNNY-2024ALO00581

PATIENT
  Age: 71 Year
  Sex: Female

DRUGS (2)
  1. NITROFURANTOIN [Suspect]
     Active Substance: NITROFURANTOIN
     Indication: Urinary tract infection
     Dosage: 100 MG, 2X/DAY
     Dates: start: 20241206
  2. DIGOXIN [Concomitant]
     Active Substance: DIGOXIN

REACTIONS (12)
  - Heart rate increased [Unknown]
  - Heart rate decreased [Unknown]
  - Hypotension [Unknown]
  - Hypoaesthesia [Unknown]
  - Hypokinesia [Unknown]
  - Erythema [Unknown]
  - Respiratory distress [None]
  - Dyspnoea [Unknown]
  - Urticaria [Unknown]
  - Pruritus [Unknown]
  - Fear of death [Unknown]
  - Irritability [None]

NARRATIVE: CASE EVENT DATE: 20241206
